FAERS Safety Report 23886017 (Version 3)
Quarter: 2024Q2

REPORT INFORMATION
  Report Type: Report from Study
  Country: CA (occurrence: None)
  Receive Date: 20240522
  Receipt Date: 20240611
  Transmission Date: 20240716
  Serious: Yes (Hospitalization, Other)
  Sender: FDA-Public Use
  Company Number: 2024A109320

PATIENT
  Age: 30318 Day
  Sex: Male

DRUGS (11)
  1. LYNPARZA [Suspect]
     Active Substance: OLAPARIB
     Indication: Hormone-refractory prostate cancer
     Route: 048
     Dates: start: 20240322, end: 20240510
  2. LYNPARZA [Suspect]
     Active Substance: OLAPARIB
     Indication: Hormone-refractory prostate cancer
     Route: 048
     Dates: start: 20240325
  3. LYNPARZA [Suspect]
     Active Substance: OLAPARIB
     Indication: Hormone-refractory prostate cancer
     Route: 048
     Dates: start: 20240325, end: 20240531
  4. LYNPARZA [Suspect]
     Active Substance: OLAPARIB
     Indication: Hormone-refractory prostate cancer
     Route: 048
     Dates: start: 20240511
  5. PREDNISONE [Concomitant]
     Active Substance: PREDNISONE
     Indication: Prostate cancer
     Route: 048
     Dates: start: 20240311
  6. ZYTIGA [Concomitant]
     Active Substance: ABIRATERONE ACETATE
     Indication: Prostate cancer
     Route: 048
     Dates: start: 20240311
  7. LEUPROLIDE [Concomitant]
     Active Substance: LEUPROLIDE
     Dosage: EVERY 4 MONTHS START
     Route: 030
  8. COLCHICINE [Concomitant]
     Active Substance: COLCHICINE
  9. BISOPROLOL [Concomitant]
     Active Substance: BISOPROLOL\BISOPROLOL FUMARATE
  10. CRESTOR [Concomitant]
     Active Substance: ROSUVASTATIN CALCIUM
  11. RAMIPRIL [Concomitant]
     Active Substance: RAMIPRIL

REACTIONS (6)
  - Blood test abnormal [Unknown]
  - Internal haemorrhage [Unknown]
  - Thrombosis [Unknown]
  - Dyspnoea [Not Recovered/Not Resolved]
  - Haemoglobin decreased [Unknown]
  - Creatinine renal clearance decreased [Unknown]

NARRATIVE: CASE EVENT DATE: 20240508
